FAERS Safety Report 15480327 (Version 2)
Quarter: 2018Q4

REPORT INFORMATION
  Report Type: Not Available
  Country: US (occurrence: US)
  Receive Date: 20181009
  Receipt Date: 20181106
  Transmission Date: 20190205
  Serious: No
  Sender: FDA-Public Use
  Company Number: US-NEUROCRINE BIOSCIENCES INC.-2018NBI02825

PATIENT
  Sex: Female
  Weight: 44.45 kg

DRUGS (15)
  1. INGREZZA [Suspect]
     Active Substance: VALBENAZINE
     Indication: TARDIVE DYSKINESIA
     Route: 048
     Dates: start: 20180709, end: 20180715
  2. PRIMIDONE. [Concomitant]
     Active Substance: PRIMIDONE
     Indication: TREMOR
  3. TOPIRAMATE. [Concomitant]
     Active Substance: TOPIRAMATE
     Indication: BIPOLAR DISORDER
  4. BOTOX [Concomitant]
     Active Substance: ONABOTULINUMTOXINA
     Indication: TREMOR
  5. CITALOPRAM [Concomitant]
     Active Substance: CITALOPRAM HYDROBROMIDE
     Indication: DEPRESSION
     Dosage: AT NIGHT
     Route: 048
  6. INGREZZA [Suspect]
     Active Substance: VALBENAZINE
     Route: 048
     Dates: start: 20180716, end: 20180803
  7. LEVOTHYROXINE. [Concomitant]
     Active Substance: LEVOTHYROXINE
     Indication: HYPOTHYROIDISM
     Route: 048
  8. CLONAZEPAM. [Suspect]
     Active Substance: CLONAZEPAM
     Indication: TREMOR
  9. SEROQUEL XR [Concomitant]
     Active Substance: QUETIAPINE FUMARATE
     Indication: BIPOLAR DISORDER
     Route: 048
  10. NYSTATIN. [Concomitant]
     Active Substance: NYSTATIN
     Indication: GASTROINTESTINAL CANDIDIASIS
  11. TOPIRAMATE. [Concomitant]
     Active Substance: TOPIRAMATE
     Indication: TREMOR
  12. BOTOX [Concomitant]
     Active Substance: ONABOTULINUMTOXINA
     Indication: TARDIVE DYSKINESIA
  13. LAMOTRIGINE. [Concomitant]
     Active Substance: LAMOTRIGINE
     Indication: AFFECTIVE DISORDER
  14. LITHIUM. [Concomitant]
     Active Substance: LITHIUM
     Indication: DEPRESSION
  15. LITHIUM. [Concomitant]
     Active Substance: LITHIUM
     Indication: SEASONAL AFFECTIVE DISORDER
     Route: 048

REACTIONS (5)
  - Lethargy [Recovered/Resolved]
  - Somnolence [Unknown]
  - Discomfort [Recovered/Resolved]
  - Product dose omission [Unknown]
  - Depression [Recovered/Resolved]

NARRATIVE: CASE EVENT DATE: 2018
